FAERS Safety Report 24450337 (Version 1)
Quarter: 2024Q4

REPORT INFORMATION
  Report Type: Spontaneous
  Country: US (occurrence: US)
  Receive Date: 20241017
  Receipt Date: 20241017
  Transmission Date: 20250115
  Serious: Yes (Other)
  Sender: PERRIGO
  Company Number: US-PERRIGO-24US009382

PATIENT
  Age: 7 Year
  Sex: Male
  Weight: 17.5 kg

DRUGS (10)
  1. ACETAMINOPHEN [Suspect]
     Active Substance: ACETAMINOPHEN
     Indication: Pyrexia
     Dosage: 120 MG, SINGLE
     Route: 054
     Dates: start: 20241002, end: 20241002
  2. FELBAMATE [Concomitant]
     Active Substance: FELBAMATE
     Indication: Seizure
     Dosage: 5 ML, QAM
     Route: 065
     Dates: start: 2017
  3. FELBAMATE [Concomitant]
     Active Substance: FELBAMATE
     Dosage: 4 ML, PM
     Route: 065
     Dates: start: 2017
  4. FYCOMPA [Concomitant]
     Active Substance: PERAMPANEL
     Indication: Seizure
     Dosage: 8 MG, UNK
     Route: 065
     Dates: start: 2017
  5. FENFLURAMINA [Concomitant]
     Indication: Seizure
     Dosage: UNK
     Route: 065
     Dates: start: 2017
  6. LACOSAMIDE [Concomitant]
     Active Substance: LACOSAMIDE
     Indication: Seizure
     Dosage: UNK
     Route: 065
     Dates: start: 2017
  7. CLONAZEPAM [Concomitant]
     Active Substance: CLONAZEPAM
     Indication: Seizure
     Dosage: UNK
     Route: 065
     Dates: start: 2017
  8. OMEPRAZOLE [Concomitant]
     Active Substance: OMEPRAZOLE
     Indication: Gastrointestinal disorder
     Dosage: UNK
     Route: 065
     Dates: start: 2020
  9. FLOVENT [Concomitant]
     Active Substance: FLUTICASONE PROPIONATE
     Indication: Asthma
     Dosage: UNK
     Route: 065
     Dates: start: 2021
  10. MELATONIN [Concomitant]
     Active Substance: MELATONIN
     Indication: Sleep disorder
     Dosage: UNK
     Route: 065
     Dates: start: 202401

REACTIONS (5)
  - Seizure [Recovered/Resolved]
  - Aggression [Recovered/Resolved]
  - Abnormal behaviour [Recovered/Resolved]
  - Drug screen positive [Not Recovered/Not Resolved]
  - Product use issue [Recovered/Resolved]

NARRATIVE: CASE EVENT DATE: 20241002
